FAERS Safety Report 8053432-7 (Version None)
Quarter: 2012Q1

REPORT INFORMATION
  Report Type: 
  Country: None (occurrence: None)
  Receive Date: 20120118
  Receipt Date: 20120110
  Transmission Date: 20120608
  Serious: Yes (Death)
  Sender: FDA-Public Use
  Company Number: US-GLAXOSMITHKLINE-A0961643A

PATIENT
  Age: 77 Year
  Sex: Male

DRUGS (11)
  1. MORPHINE SULFATE [Concomitant]
  2. SELENIUM [Concomitant]
     Route: 048
  3. VOTRIENT [Suspect]
     Indication: PRODUCT USED FOR UNKNOWN INDICATION
     Dosage: 800MG PER DAY
     Route: 048
     Dates: start: 20110809
  4. LOPRESSOR [Concomitant]
     Route: 048
  5. ISOSORBIDE DINITRATE [Concomitant]
     Route: 048
  6. VERAPAMIL [Concomitant]
     Route: 048
  7. ASPIRIN [Concomitant]
     Route: 048
  8. CRESTOR [Concomitant]
     Route: 048
  9. LOVENOX [Concomitant]
  10. MULTI-VITAMIN [Concomitant]
     Route: 048
  11. FINASTERIDE [Concomitant]
     Route: 048

REACTIONS (1)
  - DEATH [None]
